FAERS Safety Report 20949743 (Version 5)
Quarter: 2023Q2

REPORT INFORMATION
  Report Type: Spontaneous
  Country: US (occurrence: US)
  Receive Date: 20220613
  Receipt Date: 20230530
  Transmission Date: 20230721
  Serious: No
  Sender: FDA-Public Use
  Company Number: US-Blueprint Medicines Corporation-SP-US-2022-001545

PATIENT
  Sex: Female

DRUGS (10)
  1. AYVAKIT [Suspect]
     Active Substance: AVAPRITINIB
     Indication: Systemic mastocytosis
     Route: 048
     Dates: start: 20211029
  2. AYVAKIT [Suspect]
     Active Substance: AVAPRITINIB
     Dosage: ON AN EMPTY STOMACH. AT LEAST 1 HOUR BEFORE OR 2 HOURS AFTER A MEAL.
     Route: 048
     Dates: start: 20211029
  3. AYVAKIT [Suspect]
     Active Substance: AVAPRITINIB
     Dosage: 100 MG DAILY ALTERNATING WITH 200MG DAILY
     Route: 065
     Dates: start: 20211029
  4. AYVAKIT [Suspect]
     Active Substance: AVAPRITINIB
     Dosage: 100 MG DAILY ALTERNATING WITH 200MG DAILY
     Route: 065
     Dates: start: 20211029
  5. ATIVAN [Concomitant]
     Active Substance: LORAZEPAM
     Indication: Product used for unknown indication
     Route: 065
  6. LEVOTHYROXINE [Concomitant]
     Active Substance: LEVOTHYROXINE
     Indication: Product used for unknown indication
     Route: 065
  7. LIOTHYRONINE [Concomitant]
     Active Substance: LIOTHYRONINE
     Indication: Product used for unknown indication
     Route: 065
  8. OMEPRAZOLE [Concomitant]
     Active Substance: OMEPRAZOLE
     Indication: Product used for unknown indication
     Route: 065
  9. PROMETHAZINE [Concomitant]
     Active Substance: PROMETHAZINE HYDROCHLORIDE
     Indication: Product used for unknown indication
     Route: 065
  10. TRINTELLIX [Concomitant]
     Active Substance: VORTIOXETINE HYDROBROMIDE
     Indication: Product used for unknown indication
     Route: 065

REACTIONS (13)
  - Visual impairment [Unknown]
  - Periorbital swelling [Unknown]
  - Nausea [Unknown]
  - Vomiting [Unknown]
  - Pain [Unknown]
  - Product dose omission in error [Unknown]
  - Weight decreased [Unknown]
  - Tryptase increased [Unknown]
  - Night sweats [Unknown]
  - Thinking abnormal [Unknown]
  - Feeling of body temperature change [Unknown]
  - Lacrimation increased [Unknown]
  - Memory impairment [Unknown]
